FAERS Safety Report 4282239-1 (Version None)
Quarter: 2004Q1

REPORT INFORMATION
  Report Type: 
  Country: None (occurrence: None)
  Receive Date: 20040107
  Receipt Date: 20031119
  Transmission Date: 20041129
  Serious: No
  Sender: FDA-Public Use
  Company Number: 234049

PATIENT
  Age: 10 Year
  Sex: Male
  Weight: 55.8 kg

DRUGS (4)
  1. NOVOLOG [Suspect]
     Indication: DIABETES MELLITUS INSULIN-DEPENDENT
     Dosage: 50 IU, QD, SUBCUTANEOUS
     Route: 058
     Dates: start: 20031001
  2. ZYRTEC [Concomitant]
  3. NOVOPEN(R) 3 (INSULIN DELIVERY DEVICE) [Concomitant]
  4. BD ULTRAFINE NEEDLES [Concomitant]

REACTIONS (3)
  - BLOOD GLUCOSE INCREASED [None]
  - DEHYDRATION [None]
  - URINE KETONE BODY PRESENT [None]
